FAERS Safety Report 24428724 (Version 1)
Quarter: 2024Q4

REPORT INFORMATION
  Report Type: Spontaneous
  Country: FR (occurrence: FR)
  Receive Date: 20241011
  Receipt Date: 20241011
  Transmission Date: 20250115
  Serious: Yes (Disabling)
  Sender: MERCK KGAA
  Company Number: FR-Merck Healthcare KGaA-2024052726

PATIENT
  Sex: Female

DRUGS (1)
  1. LEVOTHYROXINE [Suspect]
     Active Substance: LEVOTHYROXINE
     Indication: Hypothyroidism

REACTIONS (3)
  - Disability [Unknown]
  - Hypothyroidism [Unknown]
  - Hyperthyroidism [Unknown]
